FAERS Safety Report 12712536 (Version 2)
Quarter: 2016Q3

REPORT INFORMATION
  Report Type: Spontaneous
  Country: NO (occurrence: NO)
  Receive Date: 20160902
  Receipt Date: 20160908
  Transmission Date: 20161109
  Serious: Yes (Death, Hospitalization, Other)
  Sender: FDA-Public Use
  Company Number: NO-PFIZER INC-2016408621

PATIENT
  Age: 91 Year
  Sex: Female

DRUGS (6)
  1. CALCIGRAN FORTE [Concomitant]
     Indication: OSTEOPOROSIS
     Dosage: DF= 1000 MG CA/800 IE COLECALCIFEROL
  2. METHOTREXATE SODIUM. [Suspect]
     Active Substance: METHOTREXATE SODIUM
     Indication: ARTHRITIS
     Dosage: 10 MG ONCE A WEEK (USED FOR AT LEAST 10 YEARS)
     Route: 065
  3. FOLSYRE NAF [Concomitant]
     Active Substance: FOLIC ACID
     Dosage: 1 MG PER DAY FOR 6 DAYS OF THE WEEK
     Route: 065
  4. PARACET [Concomitant]
     Active Substance: ACETAMINOPHEN
     Dosage: 1 G, 3X/DAY
     Route: 065
  5. FURADANTIN [Concomitant]
     Active Substance: NITROFURANTOIN
     Indication: PROPHYLAXIS URINARY TRACT INFECTION
     Dosage: 50 MG, 1X/DAY
     Route: 065
     Dates: start: 201601, end: 2016
  6. SOMAC [Concomitant]
     Active Substance: PANTOPRAZOLE SODIUM
     Dosage: 20 MG, 1X/DAY
     Route: 065

REACTIONS (10)
  - Pneumonia [Fatal]
  - General physical health deterioration [Unknown]
  - Interstitial lung disease [Unknown]
  - Mouth ulceration [Unknown]
  - Oropharyngeal pain [Unknown]
  - Pancytopenia [Fatal]
  - Dysphagia [Unknown]
  - Pyrexia [Unknown]
  - Cardiac murmur [Unknown]
  - Rales [Unknown]

NARRATIVE: CASE EVENT DATE: 201608
